FAERS Safety Report 4477540-2 (Version None)
Quarter: 2004Q4

REPORT INFORMATION
  Report Type: 
  Country: None (occurrence: None)
  Receive Date: 20041013
  Receipt Date: 20040930
  Transmission Date: 20050328
  Serious: Yes (Hospitalization)
  Sender: FDA-Public Use
  Company Number: FR_031103126

PATIENT
  Age: 53 Year
  Sex: Female
  Weight: 70 kg

DRUGS (5)
  1. PERGOLIDE MESYLATE [Suspect]
     Indication: PARKINSON'S DISEASE
     Dosage: 1.5 MG/DAY
     Dates: start: 20020901, end: 20031015
  2. CO-RENITEC [Concomitant]
  3. ENDOTELON [Concomitant]
  4. LEVOTHYROXINE SODIUM [Concomitant]
  5. LEXOMIL (BROMAZEPAM) [Concomitant]

REACTIONS (4)
  - AORTIC VALVE DISEASE [None]
  - CARDIAC FAILURE ACUTE [None]
  - MITRAL VALVE DISEASE [None]
  - PULMONARY ARTERIAL WEDGE PRESSURE INCREASED [None]
